FAERS Safety Report 13684948 (Version 1)
Quarter: 2017Q2

REPORT INFORMATION
  Report Type: Spontaneous
  Country: US (occurrence: US)
  Receive Date: 20170623
  Receipt Date: 20170623
  Transmission Date: 20170830
  Serious: No
  Sender: FDA-Public Use
  Company Number: US-INTERPRAG-PM-OCA2017-00289

PATIENT

DRUGS (1)
  1. OCALIVA [Suspect]
     Active Substance: OBETICHOLIC ACID
     Dosage: UNK
     Dates: start: 201612

REACTIONS (4)
  - Blood alkaline phosphatase increased [Unknown]
  - Nausea [Unknown]
  - Drug ineffective [Unknown]
  - Pruritus [Recovering/Resolving]
